FAERS Safety Report 7529597 (Version 2)
Quarter: 2012Q4

REPORT INFORMATION
  Report Type: 
  Country: CA (occurrence: CA)
  Receive Date: 20100805
  Receipt Date: 20121109
  Transmission Date: 20130627
  Serious: Yes (Other)
  Sender: FDA-Public Use
  Company Number: PHHY2010CA50017

PATIENT
  Age: 44 Year
  Sex: Female

DRUGS (2)
  1. SANDOSTATIN LAR [Suspect]
     Indication: ACROMEGALY
     Dosage: 30 mg, QMO
     Route: 030
     Dates: start: 20060321
  2. SANDOSTATIN LAR [Suspect]
     Dosage: 20 mg, UNK

REACTIONS (10)
  - Vaginal haemorrhage [Recovered/Resolved]
  - Flank pain [Recovered/Resolved]
  - Pain [Recovered/Resolved]
  - Injection site pain [Recovered/Resolved]
  - Injection site discomfort [Unknown]
  - Injection site swelling [Unknown]
  - Injection site mass [Unknown]
  - Chills [Unknown]
  - Dizziness [Unknown]
  - Rash [Unknown]
